FAERS Safety Report 7776679-3 (Version None)
Quarter: 2011Q3

REPORT INFORMATION
  Report Type: 
  Country: None (occurrence: None)
  Receive Date: 20110926
  Receipt Date: 20110110
  Transmission Date: 20111222
  Serious: No
  Sender: FDA-Public Use
  Company Number: US-BAYER-2011-003955

PATIENT
  Age: 47 Year
  Sex: Female

DRUGS (1)
  1. MAGNEVIST [Suspect]
     Indication: NUCLEAR MAGNETIC RESONANCE IMAGING
     Dosage: 21 ML, ONCE
     Dates: start: 20110110, end: 20110110

REACTIONS (4)
  - OCULAR HYPERAEMIA [None]
  - THROAT TIGHTNESS [None]
  - COUGH [None]
  - LACRIMATION INCREASED [None]
